FAERS Safety Report 22282721 (Version 5)
Quarter: 2023Q4

REPORT INFORMATION
  Report Type: Report from Study
  Country: CA (occurrence: CA)
  Receive Date: 20230504
  Receipt Date: 20231117
  Transmission Date: 20240110
  Serious: Yes (Other)
  Sender: FDA-Public Use
  Company Number: CA-JNJFOC-20230466745

PATIENT
  Age: 44 Year
  Sex: Male
  Weight: 79.2 kg

DRUGS (2)
  1. REMICADE [Suspect]
     Active Substance: INFLIXIMAB
     Indication: Colitis ulcerative
     Route: 042
     Dates: start: 20181114
  2. REMICADE [Suspect]
     Active Substance: INFLIXIMAB
     Dosage: 10.10 MG/KG
     Route: 042

REACTIONS (6)
  - Haematochezia [Recovered/Resolved]
  - Mucous stools [Not Recovered/Not Resolved]
  - Abdominal distension [Not Recovered/Not Resolved]
  - Weight decreased [Unknown]
  - Stress [Unknown]
  - Off label use [Unknown]

NARRATIVE: CASE EVENT DATE: 20230414
